FAERS Safety Report 19135071 (Version 11)
Quarter: 2023Q1

REPORT INFORMATION
  Report Type: Report from Study
  Country: AU (occurrence: None)
  Receive Date: 20210414
  Receipt Date: 20230220
  Transmission Date: 20230417
  Serious: Yes (Hospitalization, Other)
  Sender: FDA-Public Use
  Company Number: AU-ROCHE-2806227

PATIENT
  Age: 54 Year
  Sex: Female
  Weight: 76 kg

DRUGS (23)
  1. TIRAGOLUMAB [Suspect]
     Active Substance: TIRAGOLUMAB
     Indication: Triple negative breast cancer
     Dosage: MOST RECENT DOSE RECEIVED ON 25/MAR/2021 (420 MG) PRIOR TO EVENT ONSET.
     Route: 042
     Dates: start: 20201224
  2. ATEZOLIZUMAB [Suspect]
     Active Substance: ATEZOLIZUMAB
     Indication: Triple negative breast cancer
     Dosage: MOST RECENT DOSE RECEIVED ON 25/MAR/2021 (840 MG) PRIOR TO EVENT ONSET.
     Route: 041
     Dates: start: 20201224
  3. PACLITAXEL [Suspect]
     Active Substance: PACLITAXEL
     Indication: Triple negative breast cancer
     Dosage: MOST RECENT DOSE RECEIVED ON 11/MAR/2021 (240 MG) PRIOR TO EVENT ONSET.
     Route: 042
     Dates: start: 20201224
  4. CARBOPLATIN [Suspect]
     Active Substance: CARBOPLATIN
     Indication: Triple negative breast cancer
     Dosage: MOST RECENT DOSE RECEIVED ON 25/FEB/2021 (540 MG) PRIOR TO EVENT ONSET.?5 MG/ML/MIN (AS PER PROTOCOL
     Route: 042
     Dates: start: 20201224
  5. DOXORUBICIN [Suspect]
     Active Substance: DOXORUBICIN
     Indication: Triple negative breast cancer
     Dosage: MOST RECENT DOSE RECEIVED ON 25/MAR/2021 (116 MG) PRIOR TO EVENT ONSET.
     Route: 042
     Dates: start: 20210325
  6. CYCLOPHOSPHAMIDE [Suspect]
     Active Substance: CYCLOPHOSPHAMIDE
     Indication: Triple negative breast cancer
     Dosage: MOST RECENT DOSE RECEIVED ON 25/MAR/2021 (1200 MG) PRIOR TO EVENT ONSET.
     Route: 042
     Dates: start: 20210325
  7. PERINDOPRIL [Concomitant]
     Active Substance: PERINDOPRIL
     Indication: Hypertension
     Dates: start: 2016
  8. METAMUCIL [Concomitant]
     Active Substance: PLANTAGO SEED
     Indication: Constipation
     Dosage: MEDICATION DOSE: 1 OTHER
     Route: 048
  9. METHYLPREDNISOLONE ACEPONATE [Concomitant]
     Active Substance: METHYLPREDNISOLONE ACEPONATE
     Indication: Rash
     Dosage: MEDICATION DOSE: 0.1 OTHER
     Route: 061
     Dates: start: 20210119, end: 20210416
  10. FILGRASTIM [Concomitant]
     Active Substance: FILGRASTIM
     Indication: Neutrophil count decreased
     Route: 058
     Dates: start: 20210307, end: 20210309
  11. FILGRASTIM [Concomitant]
     Active Substance: FILGRASTIM
     Indication: Neutropenia
     Dosage: 300 OTHER
     Route: 058
     Dates: start: 20210318, end: 20210319
  12. PEGFILGRASTIM [Concomitant]
     Active Substance: PEGFILGRASTIM
     Dosage: 6 BEATS/MIN
     Route: 058
     Dates: start: 20210326
  13. PEGFILGRASTIM [Concomitant]
     Active Substance: PEGFILGRASTIM
     Dosage: 6 BEATS/MIN
     Route: 058
     Dates: start: 20210417
  14. PEGFILGRASTIM [Concomitant]
     Active Substance: PEGFILGRASTIM
     Dosage: 6 BEATS/MIN
     Route: 058
     Dates: start: 20210501
  15. PEGFILGRASTIM [Concomitant]
     Active Substance: PEGFILGRASTIM
     Dosage: 6 BEATS/MIN
     Route: 058
     Dates: start: 20210515
  16. PROMETHAZINE [Concomitant]
     Active Substance: PROMETHAZINE HYDROCHLORIDE
     Indication: Prophylaxis
     Dosage: GIVEN FOR PROPHYLAXIS: YES
     Route: 065
     Dates: start: 20210406, end: 20210406
  17. HYDROCORTISONE [Concomitant]
     Active Substance: HYDROCORTISONE
     Indication: Prophylaxis
     Dosage: GIVEN FOR PROPHYLAXIS: YES
     Route: 065
     Dates: start: 20210406, end: 20210406
  18. ENOXAPARIN [Concomitant]
     Active Substance: ENOXAPARIN
     Indication: Deep vein thrombosis
     Dosage: GIVEN FOR PROPHYLAXIS: YES
     Route: 065
     Dates: start: 20210406, end: 20210406
  19. AMOXICILLIN\CLAVULANATE POTASSIUM [Concomitant]
     Active Substance: AMOXICILLIN\CLAVULANATE POTASSIUM
     Indication: Oedema
     Route: 048
     Dates: start: 20210405, end: 20210410
  20. SLOW K [Concomitant]
     Active Substance: POTASSIUM CHLORIDE
     Indication: Blood potassium decreased
     Dosage: GIVEN FOR PROPHYLAXIS: YES
     Dates: start: 20210514, end: 20210514
  21. PANTOPRAZOLE [Concomitant]
     Active Substance: PANTOPRAZOLE
     Dosage: GIVEN FOR PROPHYLAXIS: YES
     Dates: start: 20210515, end: 20210526
  22. METOCLOPRAMIDE [Concomitant]
     Active Substance: METOCLOPRAMIDE
     Dosage: GIVEN FOR PROPHYLAXIS: YES
     Dates: start: 20201224, end: 20210515
  23. INDAPAMIDE\PERINDOPRIL [Concomitant]
     Active Substance: INDAPAMIDE\PERINDOPRIL
     Indication: Hypertension
     Dates: start: 2016

REACTIONS (2)
  - Device related thrombosis [Recovered/Resolved]
  - Cellulitis [Recovered/Resolved]

NARRATIVE: CASE EVENT DATE: 20210404
